FAERS Safety Report 13489967 (Version 1)
Quarter: 2017Q2

REPORT INFORMATION
  Report Type: Report from Study
  Country: US (occurrence: US)
  Receive Date: 20170426
  Receipt Date: 20170426
  Transmission Date: 20170830
  Serious: Yes (Hospitalization, Other)
  Sender: FDA-Public Use
  Company Number: US-GILEAD-2017-0269566

PATIENT
  Age: 72 Year
  Sex: Male

DRUGS (1)
  1. RANOLAZINE. [Suspect]
     Active Substance: RANOLAZINE
     Indication: ANGINA PECTORIS
     Dosage: UNK
     Route: 048

REACTIONS (3)
  - Transient ischaemic attack [Unknown]
  - Intentional underdose [Not Recovered/Not Resolved]
  - Drug dose omission [Not Recovered/Not Resolved]
